FAERS Safety Report 12728123 (Version 1)
Quarter: 2016Q3

REPORT INFORMATION
  Report Type: Spontaneous
  Country: US (occurrence: US)
  Receive Date: 20160907
  Receipt Date: 20160907
  Transmission Date: 20161109
  Serious: No
  Sender: FDA-Public Use
  Company Number: None

PATIENT
  Age: 65 Year
  Sex: Female
  Weight: 63.45 kg

DRUGS (1)
  1. IBANDRONATE SODIUM TABLET 150 M APOTEX CORP. [Suspect]
     Active Substance: IBANDRONATE SODIUM
     Indication: OSTEOPOROSIS
     Dosage: OTHER STRENGTH:;OTHER DOSE:;OTHER FREQUENCY:ONCE A MONTH;OTHER ROUTE:
     Route: 048
     Dates: start: 20160901

REACTIONS (4)
  - Pain [None]
  - Abdominal pain upper [None]
  - Musculoskeletal discomfort [None]
  - Sleep disorder [None]

NARRATIVE: CASE EVENT DATE: 20160903
